FAERS Safety Report 25600373 (Version 1)
Quarter: 2025Q3

REPORT INFORMATION
  Report Type: Report from Study
  Country: US (occurrence: US)
  Receive Date: 20250724
  Receipt Date: 20250724
  Transmission Date: 20251021
  Serious: No
  Sender: SUNOVION
  Company Number: US-SUMITOMO PHARMA SWITZERLAND GMBH-2025SPA008871

PATIENT

DRUGS (23)
  1. ORGOVYX [Suspect]
     Active Substance: RELUGOLIX
     Indication: Prostate cancer
     Route: 048
     Dates: start: 20250612
  2. ORGOVYX [Suspect]
     Active Substance: RELUGOLIX
     Route: 048
     Dates: start: 20250613
  3. AUVELITY [Concomitant]
     Active Substance: BUPROPION HYDROCHLORIDE\DEXTROMETHORPHAN HYDROBROMIDE
     Route: 065
  4. BUPRENORPHINE [Concomitant]
     Active Substance: BUPRENORPHINE
     Route: 065
  5. CEFADROXIL [Concomitant]
     Active Substance: CEFADROXIL
  6. DEXLANSOPRAZOLE [Concomitant]
     Active Substance: DEXLANSOPRAZOLE
  7. DIAZEPAM [Concomitant]
     Active Substance: DIAZEPAM
  8. DIGOXIN [Concomitant]
     Active Substance: DIGOXIN
  9. ELIQUIS [Concomitant]
     Active Substance: APIXABAN
     Route: 065
  10. ENTRESTO [Concomitant]
     Active Substance: SACUBITRIL\VALSARTAN
  11. FUROSEMIDE [Concomitant]
     Active Substance: FUROSEMIDE
  12. JARDIANCE [Concomitant]
     Active Substance: EMPAGLIFLOZIN
     Route: 065
  13. LANTUS [Concomitant]
     Active Substance: INSULIN GLARGINE
  14. MIDODRINE [Concomitant]
     Active Substance: MIDODRINE
     Route: 065
  15. VITAMINS [Concomitant]
     Active Substance: VITAMINS
  16. OZEMPIC [Concomitant]
     Active Substance: SEMAGLUTIDE
  17. PREDNISONE [Concomitant]
     Active Substance: PREDNISONE
  18. ROSUVASTATIN [Concomitant]
     Active Substance: ROSUVASTATIN
     Route: 065
  19. SPIRONOLACTONE [Concomitant]
     Active Substance: SPIRONOLACTONE
     Route: 065
  20. TAMSULOSIN [Concomitant]
     Active Substance: TAMSULOSIN
     Route: 065
  21. TOLMETIN [Concomitant]
     Active Substance: TOLMETIN
     Route: 065
  22. TRAZODONE HCL [Concomitant]
     Active Substance: TRAZODONE HYDROCHLORIDE
     Route: 065
  23. PROBIOTICS NOS [Concomitant]
     Active Substance: PROBIOTICS NOS
     Route: 065

REACTIONS (1)
  - Hot flush [Unknown]
